FAERS Safety Report 6395653-5 (Version None)
Quarter: 2009Q4

REPORT INFORMATION
  Report Type: 
  Country: None (occurrence: None)
  Receive Date: 20091009
  Receipt Date: 20091002
  Transmission Date: 20100525
  Serious: Yes (Other)
  Sender: FDA-Public Use
  Company Number: TR-JNJFOC-20090600029

PATIENT
  Age: 28 Year
  Sex: Female

DRUGS (10)
  1. RISPERDAL CONSTA [Suspect]
     Indication: SCHIZOAFFECTIVE DISORDER
     Route: 030
  2. PALIPERIDONE [Suspect]
     Route: 065
  3. PALIPERIDONE [Suspect]
     Route: 065
  4. PALIPERIDONE [Suspect]
     Route: 065
  5. PALIPERIDONE [Suspect]
     Indication: SCHIZOAFFECTIVE DISORDER
     Route: 065
  6. RISPERDAL [Suspect]
     Indication: DRUG USE FOR UNKNOWN INDICATION
     Dosage: 4-6MG PER DAY
     Route: 065
  7. LITHIUM CARBONATE [Suspect]
     Indication: DRUG USE FOR UNKNOWN INDICATION
     Route: 065
  8. OLANZAPINE [Suspect]
     Indication: SCHIZOAFFECTIVE DISORDER
     Route: 065
  9. VALPROATE SODIUM [Suspect]
     Indication: DRUG USE FOR UNKNOWN INDICATION
     Route: 065
  10. UNSPECIFIED GENERIC DRUG [Concomitant]
     Route: 065

REACTIONS (14)
  - AKATHISIA [None]
  - ANXIETY [None]
  - DECREASED INTEREST [None]
  - DEPRESSION [None]
  - DRUG INEFFECTIVE [None]
  - FATIGUE [None]
  - HYPERSOMNIA [None]
  - INCREASED APPETITE [None]
  - IRRITABILITY [None]
  - METABOLIC SYNDROME [None]
  - RESTLESSNESS [None]
  - SCHIZOAFFECTIVE DISORDER [None]
  - TREMOR [None]
  - WEIGHT DECREASED [None]
